FAERS Safety Report 18695534 (Version 2)
Quarter: 2021Q1

REPORT INFORMATION
  Report Type: Spontaneous
  Country: GB (occurrence: GB)
  Receive Date: 20210104
  Receipt Date: 20210316
  Transmission Date: 20210419
  Serious: Yes (Other)
  Sender: FDA-Public Use
  Company Number: GB-TEVA-2020-GB-1864100

PATIENT
  Age: 71 Year
  Sex: Male
  Weight: 106 kg

DRUGS (16)
  1. ZAPAIN [Concomitant]
     Active Substance: ACETAMINOPHEN\CODEINE PHOSPHATE
     Dosage: 8 DOSAGE FORMS
     Dates: start: 20200503, end: 20201110
  2. LERCANIDIPINE HYDROCHLORIDE [Concomitant]
     Active Substance: LERCANIDIPINE HYDROCHLORIDE
     Dosage: 1 DOSAGE FORMS DAILY; 1 DOSAGE FORMS
     Dates: start: 20201130
  3. GAVISCON ADVANCE [Concomitant]
     Active Substance: POTASSIUM BICARBONATE\SODIUM ALGINATE
     Dosage: TAKE 5?10ML FOUR TIMES A DAY (AFTER MEALS AND A
     Dates: start: 20201110
  4. ALBUTEROL. [Concomitant]
     Active Substance: ALBUTEROL
     Dosage: 2 DOSAGE FORMS
     Route: 055
     Dates: start: 20201130
  5. DOXYCYCLINE. [Concomitant]
     Active Substance: DOXYCYCLINE
     Dosage: 2 DOSAGE FORMS DAILY; 2 DOSAGE FORMS
     Dates: start: 20201118, end: 20201123
  6. OMEPRAZOLE. [Concomitant]
     Active Substance: OMEPRAZOLE
     Dosage: 2 DOSAGE FORMS DAILY; 2 DOSAGE FORMS
     Dates: start: 20200503, end: 20201110
  7. SIMVASTATIN. [Concomitant]
     Active Substance: SIMVASTATIN
     Dosage: 1 DOSAGE FORMS DAILY; AT NIGHT
     Dates: start: 20200503
  8. CIALIS [Concomitant]
     Active Substance: TADALAFIL
     Dosage: USE AS DIRECTED
     Dates: start: 20201023
  9. LANSOPRAZOLE. [Concomitant]
     Active Substance: LANSOPRAZOLE
     Dosage: 2 DOSAGE FORMS DAILY; 2 DOSAGE FORMS
     Dates: start: 20201110
  10. FAMOTIDINE. [Concomitant]
     Active Substance: FAMOTIDINE
     Dosage: TO BE TAKEN EACH NIGHT
     Dates: start: 20201201
  11. CODEINE PHOSPHATE [Concomitant]
     Active Substance: CODEINE PHOSPHATE
     Dosage: TAKE ONE TO TWO TABLETS EVERY 4 HOURS WHEN REQU...
     Dates: start: 20201110
  12. TADALAFIL. [Concomitant]
     Active Substance: TADALAFIL
     Dosage: 10 MG TO BE TAKEN AT LEAST 30 MINUTES PRIOR TO, 10 MG
     Dates: start: 20200503, end: 20201023
  13. BISOPROLOL [Concomitant]
     Active Substance: BISOPROLOL
     Dosage: 1 DOSAGE FORMS DAILY; 1 DOSAGE FORMS
     Dates: start: 20200503
  14. ENALAPRIL [Suspect]
     Active Substance: ENALAPRIL
     Dosage: 10 MILLIGRAM DAILY; 10 MG
     Dates: start: 20200503
  15. ALLOPURINOL. [Concomitant]
     Active Substance: ALLOPURINOL
     Dosage: 1 DOSAGE FORMS DAILY; 1 DOSAGE FORMS
     Dates: start: 20200503
  16. POLYETHYLENE GLYCOL [Concomitant]
     Active Substance: POLYETHYLENE GLYCOLS
     Dosage: 4 DOSAGE FORMS DAILY; SACHETS.4 DOSAGE FORMS
     Dates: start: 20201110

REACTIONS (1)
  - Pharyngeal swelling [Recovered/Resolved]

NARRATIVE: CASE EVENT DATE: 20201210
